FAERS Safety Report 24441027 (Version 2)
Quarter: 2024Q4

REPORT INFORMATION
  Report Type: Spontaneous
  Country: NL (occurrence: NL)
  Receive Date: 20241016
  Receipt Date: 20241017
  Transmission Date: 20250115
  Serious: No
  Sender: ROCHE
  Company Number: NL-ROCHE-3467684

PATIENT
  Age: 12 Month
  Sex: Male
  Weight: 11.0 kg

DRUGS (1)
  1. HEMLIBRA [Suspect]
     Active Substance: EMICIZUMAB-KXWH
     Indication: Factor VIII deficiency
     Route: 065
     Dates: start: 20230120

REACTIONS (8)
  - Abnormal faeces [Unknown]
  - Anxiety [Unknown]
  - Headache [Unknown]
  - Injection site eczema [Unknown]
  - Restlessness [Unknown]
  - Gastrointestinal pain [Unknown]
  - Ear infection [Unknown]
  - Poor quality sleep [Unknown]
